FAERS Safety Report 13030551 (Version 1)
Quarter: 2016Q4

REPORT INFORMATION
  Report Type: Spontaneous
  Country: US (occurrence: US)
  Receive Date: 20161215
  Receipt Date: 20161215
  Transmission Date: 20170207
  Serious: Yes (Other)
  Sender: FDA-Public Use
  Company Number: US-PFIZER INC-2016577092

PATIENT
  Age: 25 Year
  Sex: Female

DRUGS (2)
  1. VFEND [Suspect]
     Active Substance: VORICONAZOLE
     Indication: SYSTEMIC CANDIDA
     Dosage: 200 MG, 2X/DAY
     Route: 048
     Dates: start: 20150122, end: 201502
  2. FLURBIPROFEN. [Concomitant]
     Active Substance: FLURBIPROFEN
     Dosage: THREE TO FOUR TIMES A DAY

REACTIONS (2)
  - Oesophageal obstruction [Not Recovered/Not Resolved]
  - Abdominal pain upper [Not Recovered/Not Resolved]

NARRATIVE: CASE EVENT DATE: 20150201
